FAERS Safety Report 23578948 (Version 3)
Quarter: 2024Q2

REPORT INFORMATION
  Report Type: Spontaneous
  Country: US (occurrence: US)
  Receive Date: 20240229
  Receipt Date: 20240405
  Transmission Date: 20240715
  Serious: No
  Sender: FDA-Public Use
  Company Number: US-GLAXOSMITHKLINE-US2024AMR022857

PATIENT
  Sex: Female

DRUGS (2)
  1. ZEJULA [Suspect]
     Active Substance: NIRAPARIB
     Indication: Product used for unknown indication
     Dosage: 200 MG, QD (200 MG CONCENTRATION)
  2. ZEJULA [Suspect]
     Active Substance: NIRAPARIB
     Dosage: 100 MG, QD

REACTIONS (6)
  - Fatigue [Unknown]
  - Heart rate increased [Not Recovered/Not Resolved]
  - Nausea [Unknown]
  - Hypertension [Recovering/Resolving]
  - Tachycardia [Unknown]
  - Platelet count decreased [Unknown]
